FAERS Safety Report 14831953 (Version 1)
Quarter: 2018Q2

REPORT INFORMATION
  Report Type: Report from Study
  Country: IT (occurrence: IT)
  Receive Date: 20180501
  Receipt Date: 20180501
  Transmission Date: 20180711
  Serious: Yes (Other)
  Sender: FDA-Public Use
  Company Number: IT-BAYER-2018-079297

PATIENT
  Age: 70 Year
  Sex: Female

DRUGS (7)
  1. CELECOXIB. [Suspect]
     Active Substance: CELECOXIB
     Dosage: UNK
  2. ATENOLOL. [Suspect]
     Active Substance: ATENOLOL
     Dosage: UNK
  3. INFLUENZA VIRUS VACCINE [Interacting]
     Active Substance: INFLUENZA VIRUS VACCINE
     Dosage: UNK
  4. LISINOPRIL. [Suspect]
     Active Substance: LISINOPRIL
     Dosage: UNK
  5. ACETYLSALICYLIC ACID [Suspect]
     Active Substance: ASPIRIN
  6. PHENYTOIN. [Interacting]
     Active Substance: PHENYTOIN
     Dosage: UNK
  7. ESTROGENS ESTERIFIED [Interacting]
     Active Substance: ESTROGENS, ESTERIFIED
     Dosage: UNK

REACTIONS (18)
  - Coma [Recovered/Resolved]
  - Stupor [Recovered/Resolved]
  - Delirium [Recovered/Resolved]
  - Headache [Recovered/Resolved]
  - Torticollis [Recovered/Resolved]
  - Eye disorder [Recovered/Resolved]
  - Diplopia [Recovered/Resolved]
  - Drug interaction [None]
  - Pyrexia [Recovered/Resolved]
  - Mental impairment [Recovered/Resolved]
  - Vomiting [Recovered/Resolved]
  - Movement disorder [Recovered/Resolved]
  - Nervous system disorder [Recovered/Resolved]
  - Respiratory distress [Recovered/Resolved]
  - Cough [Recovered/Resolved]
  - Disorientation [Recovered/Resolved]
  - Nausea [Recovered/Resolved]
  - Eye pain [Recovered/Resolved]
